FAERS Safety Report 5356400-9 (Version None)
Quarter: 2007Q2

REPORT INFORMATION
  Report Type: 
  Country: None (occurrence: None)
  Receive Date: 20070613
  Receipt Date: 20070607
  Transmission Date: 20071010
  Serious: Yes (Death)
  Sender: FDA-Public Use
  Company Number: US-MERCK-0706USA01279

PATIENT
  Age: 82 Year
  Sex: Female

DRUGS (2)
  1. SINGULAIR [Suspect]
     Route: 048
  2. FOSAMAX [Suspect]
     Route: 065

REACTIONS (1)
  - DEATH [None]
